FAERS Safety Report 21914691 (Version 2)
Quarter: 2023Q1

REPORT INFORMATION
  Report Type: Other
  Country: MX (occurrence: None)
  Receive Date: 20230126
  Receipt Date: 20230201
  Transmission Date: 20230417
  Serious: Yes (Hospitalization)
  Sender: FDA-Public Use
  Company Number: MX-ROCHE-2959801

PATIENT
  Age: 75 Year
  Sex: Female
  Weight: 62 kg

DRUGS (7)
  1. GAZYVA [Suspect]
     Active Substance: OBINUTUZUMAB
     Indication: Follicular lymphoma
     Dosage: 40 ML
     Route: 042
     Dates: start: 20191001
  2. METFORMIN HYDROCHLORIDE [Concomitant]
     Active Substance: METFORMIN HYDROCHLORIDE
     Indication: Diabetes mellitus
     Route: 048
     Dates: start: 2009
  3. LYRICA [Concomitant]
     Active Substance: PREGABALIN
     Route: 048
  4. CLORTALIDONE [Concomitant]
     Indication: Diabetes mellitus
  5. PLAVIX [Concomitant]
     Active Substance: CLOPIDOGREL BISULFATE
  6. LIPITOR [Concomitant]
     Active Substance: ATORVASTATIN CALCIUM
  7. DIOSMIN [Concomitant]
     Active Substance: DIOSMIN

REACTIONS (41)
  - COVID-19 pneumonia [Not Recovered/Not Resolved]
  - Malaise [Unknown]
  - Blood pressure increased [Recovered/Resolved]
  - Headache [Recovered/Resolved]
  - Asthenia [Recovered/Resolved]
  - Nausea [Recovered/Resolved]
  - Insomnia [Recovered/Resolved]
  - Peripheral swelling [Recovered/Resolved]
  - Abdominal distension [Recovered/Resolved]
  - Paraesthesia [Recovered/Resolved]
  - Anxiety [Recovered/Resolved]
  - Discomfort [Recovered/Resolved]
  - Somnolence [Recovered/Resolved]
  - Dizziness [Recovered/Resolved]
  - Gait disturbance [Recovered/Resolved]
  - Photophobia [Recovered/Resolved]
  - Gastritis [Recovered/Resolved]
  - Poor peripheral circulation [Recovered/Resolved]
  - Body height increased [Recovered/Resolved]
  - Weight increased [Recovered/Resolved]
  - Fatigue [Recovering/Resolving]
  - Depressed mood [Recovered/Resolved]
  - Pruritus [Recovered/Resolved]
  - Restlessness [Recovered/Resolved]
  - Somnolence [Recovered/Resolved]
  - Asthenia [Recovering/Resolving]
  - Limb discomfort [Recovering/Resolving]
  - Anxiety [Recovering/Resolving]
  - Paraesthesia [Recovering/Resolving]
  - Somnolence [Recovering/Resolving]
  - Headache [Recovering/Resolving]
  - Somnolence [Recovering/Resolving]
  - Dizziness [Recovering/Resolving]
  - Balance disorder [Recovering/Resolving]
  - Nausea [Recovering/Resolving]
  - Peripheral vascular disorder [Recovering/Resolving]
  - Weight decreased [Unknown]
  - COVID-19 [Unknown]
  - Immunosuppression [Unknown]
  - Discomfort [Unknown]
  - Pneumonia viral [Recovering/Resolving]

NARRATIVE: CASE EVENT DATE: 20211111
